FAERS Safety Report 24383663 (Version 2)
Quarter: 2024Q4

REPORT INFORMATION
  Report Type: Report from Study
  Country: US (occurrence: US)
  Receive Date: 20241001
  Receipt Date: 20241029
  Transmission Date: 20250115
  Serious: No
  Sender: SANDOZ
  Company Number: US-SANDOZ-SDZ2024US083538

PATIENT
  Sex: Male

DRUGS (8)
  1. OMNITROPE [Suspect]
     Active Substance: SOMATROPIN
     Dosage: 3 MG, QD
     Route: 058
     Dates: start: 20240920
  2. OMNITROPE [Suspect]
     Active Substance: SOMATROPIN
     Dosage: 3 MG, QD
     Route: 058
     Dates: start: 20240920
  3. OMNITROPE [Suspect]
     Active Substance: SOMATROPIN
     Dosage: 3 MG, QD
     Route: 058
     Dates: start: 20240920
  4. OMNITROPE [Suspect]
     Active Substance: SOMATROPIN
     Dosage: 3 MG, QD
     Route: 058
     Dates: start: 20240920
  5. OMNITROPE [Suspect]
     Active Substance: SOMATROPIN
     Indication: Short stature
     Dosage: 2 MG, QD
     Route: 058
  6. OMNITROPE [Suspect]
     Active Substance: SOMATROPIN
     Indication: Short stature
     Dosage: 2 MG, QD
     Route: 058
  7. OMNITROPE [Suspect]
     Active Substance: SOMATROPIN
     Indication: Short stature
     Dosage: 2 MG, QD
     Route: 058
  8. OMNITROPE [Suspect]
     Active Substance: SOMATROPIN
     Indication: Short stature
     Dosage: 2 MG, QD
     Route: 058

REACTIONS (2)
  - Incorrect dose administered [Unknown]
  - Device leakage [Unknown]
